FAERS Safety Report 25808526 (Version 2)
Quarter: 2025Q3

REPORT INFORMATION
  Report Type: Spontaneous
  Country: US (occurrence: US)
  Receive Date: 20250916
  Receipt Date: 20250925
  Transmission Date: 20251020
  Serious: Yes (Hospitalization)
  Sender: DR REDDYS
  Company Number: None

PATIENT
  Age: 59 Year
  Sex: Female

DRUGS (45)
  1. MONTELUKAST [Suspect]
     Active Substance: MONTELUKAST
     Indication: Product used for unknown indication
     Dosage: AT BEDTIME
     Route: 048
  2. FLUTICASONE FUROATE\VILANTEROL TRIFENATATE [Suspect]
     Active Substance: FLUTICASONE FUROATE\VILANTEROL TRIFENATATE
     Indication: Product used for unknown indication
     Dosage: FLUTICASONE FUROATE-VILANTEROL INHALER, 1 PUFF BY MOUTH DAILY
     Route: 048
  3. ALBUTEROL [Concomitant]
     Active Substance: ALBUTEROL
     Indication: Product used for unknown indication
     Dosage: 2.5 MG/3 ML (0.083%) NEBULIZER SOLUTION, EVERY 4 HOURS AS NEEDED
  4. ALBUTEROL [Concomitant]
     Active Substance: ALBUTEROL
     Dosage: ACTUATION INHALER, 2 PUFFS, AS NEEDED
     Route: 048
  5. ALTEPLASE [Concomitant]
     Active Substance: ALTEPLASE
     Indication: Device occlusion
  6. ASPIRIN [Concomitant]
     Active Substance: ASPIRIN
     Indication: Device occlusion
     Dosage: ASPIRIN 80 MG, 1 TABLET BY MOUTH DAILY (PATIENT TAKING DIFFERENTLY: 325 MG DAILY)
     Route: 048
  7. ASPIRIN [Concomitant]
     Active Substance: ASPIRIN
     Dosage: ASPIRIN 80 MG, 1 TABLET BY MOUTH DAILY
     Route: 048
  8. ATENOLOL [Concomitant]
     Active Substance: ATENOLOL
     Indication: Product used for unknown indication
     Dosage: ATENOLOL 25 MG, 1 TABLET BY MOUTH DAILY
     Route: 048
  9. BACLOFEN [Concomitant]
     Active Substance: BACLOFEN
     Indication: Product used for unknown indication
     Dosage: BACLOFEN 20 MG, 1 TABLET BY MOUTH 3 TIMES DAILY
     Route: 048
  10. BUPROPION [Concomitant]
     Active Substance: BUPROPION
     Indication: Major depression
     Dosage: BUPROPION 300 MG, 1 TABLET BY MOUTH DAILY
     Route: 048
  11. BUPROPION [Concomitant]
     Active Substance: BUPROPION
     Dosage: BUPROPION 150 MG, 1 TABLET BY MOUTH TWICE DAILY
     Route: 048
  12. CALCIUM GLUCONATE [Concomitant]
     Active Substance: CALCIUM GLUCONATE
     Indication: Product used for unknown indication
     Route: 042
  13. CHOLECALCIFEROL [Concomitant]
     Active Substance: CHOLECALCIFEROL
     Indication: Product used for unknown indication
     Dosage: CHOLECALCIFEROL 125 MCG (5000 UNIT), 1 CAPSULE BY MOUTH DAILY
     Route: 048
  14. DEXTROSE [Concomitant]
     Active Substance: DEXTROSE MONOHYDRATE
     Indication: Product used for unknown indication
     Route: 048
  15. DOXEPIN [Concomitant]
     Active Substance: DOXEPIN
     Indication: Product used for unknown indication
     Dosage: DOXEPIN 10 MG, 2 TO 3 CAPSULES BY MOUTH AT BEDTIME
     Route: 048
  16. DOXEPIN [Concomitant]
     Active Substance: DOXEPIN
     Route: 048
  17. DULOXETINE [Concomitant]
     Active Substance: DULOXETINE
     Indication: Product used for unknown indication
     Dosage: DULOXETINE 60 MG DELAYED RELEASE CAPSULE, 1 CAPSULE BY MOUTH DAILY
     Route: 048
  18. ERGOCALCIFEROL [Concomitant]
     Active Substance: ERGOCALCIFEROL
     Indication: Product used for unknown indication
     Dosage: 50,000 UNIT, 1 CAPSULE BY MOUTH EVERY 7 DAYS.
     Route: 048
  19. GLUCAGON [Concomitant]
     Active Substance: GLUCAGON
     Indication: Product used for unknown indication
     Route: 048
  20. DEXTROSE [Concomitant]
     Active Substance: DEXTROSE MONOHYDRATE
     Indication: Product used for unknown indication
  21. HEPARIN [Concomitant]
     Active Substance: HEPARIN SODIUM
     Indication: Product used for unknown indication
     Dosage: HEPARIN 5000 UNITS, SUBCUTANEOUS INJECTION EVERY 6 HOURS
     Route: 058
  22. HEPARIN [Concomitant]
     Active Substance: HEPARIN SODIUM
  23. HEPARIN [Concomitant]
     Active Substance: HEPARIN SODIUM
  24. HEPARIN [Concomitant]
     Active Substance: HEPARIN SODIUM
  25. INSULIN LISPRO [Concomitant]
     Active Substance: INSULIN LISPRO
     Indication: Product used for unknown indication
     Dosage: INSULIN LISPRO INJECTION 1 TO 6 UNITS, BEFORE EVERY MEAL AND AT BEDTIME.
     Route: 058
  26. IPRATROPIUM, ALBUTEROL [Concomitant]
     Indication: Product used for unknown indication
     Dosage: IPRATROPIUM-ALBUTEROL 0.5 TO 3 MG (2.5 MG BASE)/3 ML NEBULIZER SOLUTION 3 ML, EVERY 4 HOURS AS NEEDE
  27. MAGNESIUM OXIDE [Concomitant]
     Active Substance: MAGNESIUM OXIDE
     Indication: Product used for unknown indication
  28. MAGNESIUM SULFATE [Concomitant]
     Active Substance: MAGNESIUM SULFATE
     Indication: Product used for unknown indication
  29. MELATONIN [Concomitant]
     Active Substance: MELATONIN
     Indication: Product used for unknown indication
     Dosage: MELATONIN 3 MG TABLET, NIGHTLY BY MOUTH AS NEEDED
     Route: 048
  30. MORPHINE [Concomitant]
     Active Substance: MORPHINE
     Indication: Product used for unknown indication
     Dosage: MORPHINE 0.5 MG INJECTION, EVERY 4 HOURS AS NEEDED
  31. NICOTINE [Concomitant]
     Active Substance: NICOTINE
     Indication: Product used for unknown indication
     Dosage: NICOTINE 7 MG/24 HOUR TRANSDERMAL PATCH, 1 PATCH EVERY 24 HOURS
     Route: 062
  32. NICOTINE [Concomitant]
     Active Substance: NICOTINE
     Dosage: NICOTINE 21 MG/24-HOUR TRANSDERMAL PATCH, 1 PATCH EVERY 24 HOURS
     Route: 062
  33. ACETAMINOPHEN\OXYCODONE HYDROCHLORIDE [Concomitant]
     Active Substance: ACETAMINOPHEN\OXYCODONE HYDROCHLORIDE
     Indication: Product used for unknown indication
     Dosage: OXYCODONE-ACETAMINOPHEN 5 TO 325 MG, 2 TABLETS BY MOUTH EVERY 4 HOURS AS NEEDED
     Route: 048
  34. ACETAMINOPHEN\OXYCODONE HYDROCHLORIDE [Concomitant]
     Active Substance: ACETAMINOPHEN\OXYCODONE HYDROCHLORIDE
     Dosage: OXYCODONE-ACETAMINOPHEN 5 TO 325 MG, 1 TABLET BY MOUTH EVERY 6 HOURS AS NEEDED
     Route: 048
  35. POTASSIUM, SODIUM, PHOSPHORUS [Concomitant]
     Indication: Product used for unknown indication
  36. POTASSIUM CHLORIDE [Concomitant]
     Active Substance: POTASSIUM CHLORIDE
     Indication: Product used for unknown indication
     Route: 042
  37. POTASSIUM CHLORIDE [Concomitant]
     Active Substance: POTASSIUM CHLORIDE
  38. POTASSIUM PHOSPHATE [Concomitant]
     Active Substance: POTASSIUM PHOSPHATE
     Indication: Product used for unknown indication
  39. PRAVASTATIN [Concomitant]
     Active Substance: PRAVASTATIN
     Indication: Product used for unknown indication
     Dosage: EVERY NIGHT AT BEDTIME
     Route: 048
  40. SODIUM PHOSPHATE [Concomitant]
     Active Substance: SODIUM PHOSPHATE
     Indication: Product used for unknown indication
     Route: 042
  41. TIOTROPIUM BROMIDE [Concomitant]
     Active Substance: TIOTROPIUM BROMIDE
     Indication: Product used for unknown indication
     Dosage: TIOTROPIUM BROMIDE 5 MCG INHALER DAILY
  42. ACETAZOLAMIDE [Concomitant]
     Active Substance: ACETAZOLAMIDE
     Indication: Product used for unknown indication
     Dosage: ACETAZOLAMIDE 500 MG, 1 CAPSULE BY MOUTH TWICE DAILY
     Route: 048
  43. CEFAZOLIN [Concomitant]
     Active Substance: CEFAZOLIN
     Indication: Extradural abscess
  44. CEFAZOLIN [Concomitant]
     Active Substance: CEFAZOLIN
     Indication: Bacteraemia
  45. HYDROMORPHONE [Concomitant]
     Active Substance: HYDROMORPHONE
     Indication: Pain
     Dosage: AS NEEDED
     Route: 042

REACTIONS (2)
  - Encephalopathy [Recovered/Resolved]
  - Drug interaction [Recovered/Resolved]
